FAERS Safety Report 7407477-8 (Version None)
Quarter: 2011Q2

REPORT INFORMATION
  Report Type: 
  Country: None (occurrence: None)
  Receive Date: 20110411
  Receipt Date: 20110329
  Transmission Date: 20111010
  Serious: Yes (Hospitalization)
  Sender: FDA-Public Use
  Company Number: GB-MYLANLABS-2011S1006686

PATIENT
  Age: 50 Year
  Sex: Female

DRUGS (5)
  1. PHENYTOIN [Suspect]
     Indication: EPILEPSY
     Route: 065
  2. FLOXACILLIN SODIUM [Interacting]
     Indication: STAPHYLOCOCCAL INFECTION
     Route: 042
     Dates: start: 20100501
  3. PHENOBARBITAL SRT [Interacting]
     Indication: EPILEPSY
     Route: 065
  4. CARBAMAZEPINE [Interacting]
     Indication: EPILEPSY
     Route: 065
  5. PARACETAMOL [Interacting]
     Indication: STAPHYLOCOCCAL INFECTION
     Route: 065
     Dates: start: 20100501

REACTIONS (2)
  - METABOLIC ACIDOSIS [None]
  - DRUG INTERACTION [None]
